FAERS Safety Report 4457468-4 (Version None)
Quarter: 2004Q3

REPORT INFORMATION
  Report Type: 
  Country: None (occurrence: None)
  Receive Date: 20040922
  Receipt Date: 20040910
  Transmission Date: 20050211
  Serious: Yes (Death, Other)
  Sender: FDA-Public Use
  Company Number: 2004065155

PATIENT
  Age: 85 Year
  Sex: Female

DRUGS (2)
  1. DIFLUCAN [Suspect]
     Indication: SYSTEMIC CANDIDA
     Dosage: 200 MG (200 MG, 1 IN 1 D), ORAL
     Route: 048
     Dates: start: 20040101, end: 20040101
  2. DISOPYRAMIDE PHOSPHATE (DISOPYRAMIDE PHOSPHATE) [Concomitant]
     Indication: ATRIAL FIBRILLATION
     Dosage: 600 MG (200 MG, 3 IN 1 D), ORAL
     Route: 048
     Dates: start: 20040101, end: 20040101

REACTIONS (3)
  - CREATININE RENAL CLEARANCE DECREASED [None]
  - ELECTROCARDIOGRAM QT PROLONGED [None]
  - MEDICATION ERROR [None]
